FAERS Safety Report 5201475-0 (Version None)
Quarter: 2007Q1

REPORT INFORMATION
  Report Type: 
  Country: None (occurrence: None)
  Receive Date: 20070108
  Receipt Date: 20061227
  Transmission Date: 20070707
  Serious: Yes (Hospitalization, Other)
  Sender: FDA-Public Use
  Company Number: US-PFIZER INC-2006124772

PATIENT
  Age: 72 Year
  Sex: Female
  Weight: 113.4 kg

DRUGS (1)
  1. BEXTRA [Suspect]
     Indication: ARTHRITIS
     Route: 048
     Dates: start: 20040901, end: 20041125

REACTIONS (1)
  - CEREBROVASCULAR ACCIDENT [None]
